FAERS Safety Report 17021931 (Version 1)
Quarter: 2019Q4

REPORT INFORMATION
  Report Type: Spontaneous
  Country: US (occurrence: US)
  Receive Date: 20191008
  Receipt Date: 20191008
  Transmission Date: 20200122
  Serious: Yes (Other)
  Sender: FDA-Public Use
  Company Number: None

PATIENT
  Age: 38 Year
  Sex: Male
  Weight: 99.79 kg

DRUGS (4)
  1. KOLONIPIN [Concomitant]
     Active Substance: CLONAZEPAM
  2. LEXAPRO [Suspect]
     Active Substance: ESCITALOPRAM OXALATE
     Indication: INSOMNIA
     Dosage: ?          QUANTITY:1 DF DOSAGE FORM;?
     Route: 048
     Dates: start: 20180216, end: 20190820
  3. LIONS MANE [Concomitant]
  4. MULTIVITAMIN [Concomitant]
     Active Substance: VITAMINS

REACTIONS (8)
  - Apathy [None]
  - Alopecia [None]
  - Abnormal behaviour [None]
  - Epistaxis [None]
  - Mania [None]
  - Alcohol use [None]
  - Loss of consciousness [None]
  - Syncope [None]
